FAERS Safety Report 24322416 (Version 1)
Quarter: 2024Q3

REPORT INFORMATION
  Report Type: Spontaneous
  Country: CN (occurrence: None)
  Receive Date: 20240916
  Receipt Date: 20240916
  Transmission Date: 20241017
  Serious: Yes (Hospitalization)
  Sender: ASTRAZENECA
  Company Number: 2024A207985

PATIENT
  Age: 21621 Day
  Sex: Male
  Weight: 69.4 kg

DRUGS (1)
  1. DAPAGLIFLOZIN [Suspect]
     Active Substance: DAPAGLIFLOZIN
     Indication: Type 2 diabetes mellitus
     Route: 048
     Dates: start: 20240829, end: 20240830

REACTIONS (1)
  - Ketosis [Recovered/Resolved]

NARRATIVE: CASE EVENT DATE: 20240830
